FAERS Safety Report 6056175-4 (Version None)
Quarter: 2009Q1

REPORT INFORMATION
  Report Type: 
  Country: None (occurrence: None)
  Receive Date: 20090123
  Receipt Date: 20090123
  Transmission Date: 20090719
  Serious: No
  Sender: FDA-Public Use
  Company Number: None

PATIENT
  Sex: Male
  Weight: 92.9874 kg

DRUGS (10)
  1. CYPROHEPTADINE HCL [Suspect]
     Indication: MIGRAINE PROPHYLAXIS
     Dosage: 8 MG AT BEDTIME PO
     Route: 048
  2. VERAPAMIL EXTENDED-RELEASE [Concomitant]
  3. GLUCOPHAGE [Concomitant]
  4. ACTOS [Concomitant]
  5. GLYSET [Concomitant]
  6. MULTI-VITAMIN [Concomitant]
  7. ASPIRIN [Concomitant]
  8. LYRICA [Concomitant]
  9. PHRENALIN FORTE [Concomitant]
  10. FIORACET WITH CODEINE [Concomitant]

REACTIONS (1)
  - DYSURIA [None]
